FAERS Safety Report 4273283-9 (Version None)
Quarter: 2004Q1

REPORT INFORMATION
  Report Type: 
  Country: None (occurrence: None)
  Receive Date: 20040116
  Receipt Date: 20040112
  Transmission Date: 20041129
  Serious: Yes (Life-Threatening, Hospitalization)
  Sender: FDA-Public Use
  Company Number: WAES 0401USA00957

PATIENT
  Age: 40 Year
  Sex: Male

DRUGS (2)
  1. ULTRACET [Concomitant]
  2. VIOXX [Suspect]
     Route: 048
     Dates: start: 20040104

REACTIONS (1)
  - CEREBROVASCULAR ACCIDENT [None]
